FAERS Safety Report 8312560-9 (Version None)
Quarter: 2012Q2

REPORT INFORMATION
  Report Type: 
  Country: None (occurrence: None)
  Receive Date: 20120424
  Receipt Date: 20120409
  Transmission Date: 20120825
  Serious: Yes (Hospitalization, Other)
  Sender: FDA-Public Use
  Company Number: 2012MA004731

PATIENT
  Age: 55 Year
  Sex: Female

DRUGS (3)
  1. CAPECITABINE [Concomitant]
  2. GEMCITABINE HYDROCHLORIDE [Suspect]
     Indication: PANCREATIC CARCINOMA STAGE II
     Dosage: 40 MG/M**2, 1X;
  3. DOCETAXEL [Concomitant]

REACTIONS (10)
  - GAIT DISTURBANCE [None]
  - PAIN IN EXTREMITY [None]
  - INFLAMMATION [None]
  - MYOSITIS [None]
  - TOXICITY TO VARIOUS AGENTS [None]
  - ALDOLASE INCREASED [None]
  - GLYCOSYLATED HAEMOGLOBIN INCREASED [None]
  - HYPOREFLEXIA [None]
  - MUSCULAR WEAKNESS [None]
  - MUSCLE ATROPHY [None]
